FAERS Safety Report 21529818 (Version 1)
Quarter: 2022Q4

REPORT INFORMATION
  Report Type: Spontaneous
  Country: CN (occurrence: CN)
  Receive Date: 20221031
  Receipt Date: 20221031
  Transmission Date: 20230113
  Serious: Yes (Other)
  Sender: FDA-Public Use
  Company Number: CN-ELI_LILLY_AND_COMPANY-CN202210009703

PATIENT
  Age: 88 Year
  Sex: Female
  Weight: 49.9 kg

DRUGS (2)
  1. ZYPREXA [Suspect]
     Active Substance: OLANZAPINE
     Indication: Psychotic symptom
     Dosage: 2.5 MG, DAILY (AT NIGHT AND LATER ON THE DOSE WAS STARTED AT NOON)
     Route: 048
     Dates: start: 20220929, end: 20221018
  2. ZYPREXA [Suspect]
     Active Substance: OLANZAPINE
     Dosage: 7.5 MG, EACH EVENING
     Route: 048
     Dates: end: 20221018

REACTIONS (1)
  - White blood cell count decreased [Recovering/Resolving]

NARRATIVE: CASE EVENT DATE: 20221004
